FAERS Safety Report 25621116 (Version 1)
Quarter: 2025Q3

REPORT INFORMATION
  Report Type: Spontaneous
  Country: IL (occurrence: IL)
  Receive Date: 20250730
  Receipt Date: 20250730
  Transmission Date: 20251021
  Serious: Yes (Hospitalization, Other)
  Sender: TEVA
  Company Number: IL-TEVA-VS-3356026

PATIENT
  Age: 85 Year
  Sex: Female
  Weight: 92 kg

DRUGS (2)
  1. SIMVASTATIN [Interacting]
     Active Substance: SIMVASTATIN
     Indication: Hyperlipidaemia
     Route: 065
  2. AMIODARONE HYDROCHLORIDE [Interacting]
     Active Substance: AMIODARONE HYDROCHLORIDE
     Indication: Atrial flutter
     Route: 065

REACTIONS (5)
  - Atrial flutter [Unknown]
  - Palpitations [Unknown]
  - Drug interaction [Unknown]
  - Cardiac failure [Unknown]
  - Adverse drug reaction [Unknown]
